FAERS Safety Report 14815101 (Version 1)
Quarter: 2018Q2

REPORT INFORMATION
  Report Type: Other
  Country: JP (occurrence: JP)
  Receive Date: 20180426
  Receipt Date: 20180426
  Transmission Date: 20180711
  Serious: Yes (Hospitalization, Other)
  Sender: FDA-Public Use
  Company Number: JP-ACTELION-A-CH2018-171220

PATIENT
  Age: 38 Year
  Sex: Female

DRUGS (4)
  1. NITRIC OXIDE. [Concomitant]
     Active Substance: NITRIC OXIDE
  2. EPOPROSTENOL ACT [Suspect]
     Active Substance: EPOPROSTENOL
     Indication: PULMONARY HYPERTENSION
     Route: 042
  3. HEPARIN [Concomitant]
     Active Substance: HEPARIN SODIUM
  4. NITROGLYCERIN. [Concomitant]
     Active Substance: NITROGLYCERIN

REACTIONS (14)
  - Tracheostomy [Unknown]
  - Clostridium test positive [Recovering/Resolving]
  - Diarrhoea [Recovering/Resolving]
  - Pneumonia aspiration [Unknown]
  - C-reactive protein increased [Unknown]
  - Pyrexia [Unknown]
  - Hypoxia [Unknown]
  - Acute kidney injury [Unknown]
  - Thrombolysis [Unknown]
  - Pseudomembranous colitis [Recovering/Resolving]
  - Cerebral disorder [Unknown]
  - Respiratory disorder [Unknown]
  - Sputum discoloured [Unknown]
  - White blood cell count increased [Unknown]
